FAERS Safety Report 6209199-8 (Version None)
Quarter: 2009Q2

REPORT INFORMATION
  Report Type: 
  Country: None (occurrence: None)
  Receive Date: 20090529
  Receipt Date: 20090518
  Transmission Date: 20091009
  Serious: Yes (Other)
  Sender: FDA-Public Use
  Company Number: US-JNJFOC-20090504617

PATIENT
  Age: 49 Year
  Sex: Female
  Weight: 117.94 kg

DRUGS (4)
  1. TYLENOL SINUS CONGESTION + PAIN SEVERE COOL BURST [Suspect]
     Route: 048
  2. TYLENOL SINUS CONGESTION + PAIN SEVERE COOL BURST [Suspect]
     Indication: SINUS HEADACHE
     Route: 048
  3. BENADRYL [Suspect]
     Indication: EAR PAIN
     Dosage: ^ADULT DOSAGE^
     Route: 048
  4. ADVIL [Suspect]
     Indication: EAR PAIN
     Route: 048

REACTIONS (3)
  - DYSSTASIA [None]
  - URTICARIA [None]
  - VOMITING [None]
